FAERS Safety Report 18365082 (Version 2)
Quarter: 2020Q4

REPORT INFORMATION
  Report Type: Other
  Country: US (occurrence: US)
  Receive Date: 20201009
  Receipt Date: 20201230
  Transmission Date: 20210114
  Serious: Yes (Hospitalization)
  Sender: FDA-Public Use
  Company Number: US-CADILA HEALTHCARE LIMITED-US-ZYDUS-056681

PATIENT
  Age: 86 Year
  Sex: Female

DRUGS (1)
  1. ATENOLOL + CHLORTHALIDONE TABLET [Suspect]
     Active Substance: ATENOLOL\CHLORTHALIDONE
     Indication: HYPERTENSION
     Dosage: 50 MG/ 25 MG, QD
     Route: 048
     Dates: start: 20200616, end: 2020

REACTIONS (2)
  - Blood pressure abnormal [Recovered/Resolved]
  - Drug ineffective [Recovered/Resolved]

NARRATIVE: CASE EVENT DATE: 202006
